FAERS Safety Report 4295117-9 (Version None)
Quarter: 2004Q1

REPORT INFORMATION
  Report Type: 
  Country: None (occurrence: None)
  Receive Date: 20040212
  Receipt Date: 20040127
  Transmission Date: 20041129
  Serious: Yes (Hospitalization)
  Sender: FDA-Public Use
  Company Number: 204378

PATIENT
  Age: 65 Year
  Sex: Female

DRUGS (7)
  1. HERCEPTIN [Suspect]
     Indication: BREAST CANCER METASTATIC
     Dosage: 440 MG, I/WEEK, INTRAVENOUS
     Route: 042
     Dates: start: 20031110, end: 20040119
  2. TAXOL [Suspect]
     Indication: BREAST CANCER METASTATIC
     Dosage: 300 MG, 1/WEEK, INTRAVENOUS
     Route: 042
     Dates: start: 20031110, end: 20040119
  3. MULTI-VITAMINS [Concomitant]
  4. DECADRON [Concomitant]
  5. VICODIN [Concomitant]
  6. ZOLOFT [Concomitant]
  7. XANAX [Concomitant]

REACTIONS (5)
  - ANTICONVULSANT DRUG LEVEL BELOW THERAPEUTIC [None]
  - CONVULSION [None]
  - LOSS OF CONSCIOUSNESS [None]
  - METASTASES TO CENTRAL NERVOUS SYSTEM [None]
  - SYNCOPE VASOVAGAL [None]
